FAERS Safety Report 26053619 (Version 3)
Quarter: 2025Q4

REPORT INFORMATION
  Report Type: Spontaneous
  Country: CA (occurrence: CA)
  Receive Date: 20251117
  Receipt Date: 20251212
  Transmission Date: 20260117
  Serious: Yes (Other)
  Sender: TEVA
  Company Number: CA-TEVA-VS-3392408

PATIENT
  Age: 78 Year
  Sex: Male
  Weight: 58.9 kg

DRUGS (21)
  1. BACTRIM [Suspect]
     Active Substance: SULFAMETHOXAZOLE\TRIMETHOPRIM
     Indication: Product used for unknown indication
     Route: 065
     Dates: start: 20250926, end: 20251008
  2. PREDNISONE [Suspect]
     Active Substance: PREDNISONE
     Indication: Premedication
     Route: 065
     Dates: start: 20250918, end: 20250921
  3. PREDNISONE [Suspect]
     Active Substance: PREDNISONE
     Indication: Premedication
     Route: 048
     Dates: start: 20250919, end: 20250925
  4. PREDNISONE [Suspect]
     Active Substance: PREDNISONE
     Indication: Premedication
     Route: 048
     Dates: start: 20250922, end: 20250925
  5. PREDNISONE [Suspect]
     Active Substance: PREDNISONE
     Indication: Premedication
     Route: 065
     Dates: start: 20250926, end: 20250926
  6. PREDNISONE [Suspect]
     Active Substance: PREDNISONE
     Indication: Premedication
     Route: 048
     Dates: start: 20250926, end: 20250926
  7. PREDNISONE [Suspect]
     Active Substance: PREDNISONE
     Indication: Premedication
     Route: 048
     Dates: start: 20250927, end: 20251003
  8. PREDNISONE [Suspect]
     Active Substance: PREDNISONE
     Indication: Premedication
     Route: 048
     Dates: start: 20251004, end: 20251007
  9. PREDNISONE [Suspect]
     Active Substance: PREDNISONE
     Indication: Premedication
     Route: 048
     Dates: start: 20251008, end: 20251008
  10. RITUXIMAB [Concomitant]
     Active Substance: RITUXIMAB
     Indication: Product used for unknown indication
     Dates: start: 20250926
  11. METHYLPREDNISOLONE [Concomitant]
     Active Substance: METHYLPREDNISOLONE
     Indication: Product used for unknown indication
     Dates: start: 20250916, end: 20250918
  12. ROSUVASTATIN [Concomitant]
     Active Substance: ROSUVASTATIN
     Indication: Product used for unknown indication
     Dates: start: 2015
  13. CALCIUM [Concomitant]
     Active Substance: CALCIUM
     Indication: Product used for unknown indication
     Dates: start: 20250919
  14. VITAMIN D3 [Concomitant]
     Active Substance: CHOLECALCIFEROL
     Indication: Product used for unknown indication
     Dates: start: 20250919
  15. VITAMIN D [Concomitant]
     Active Substance: VITAMIN D NOS
     Indication: Product used for unknown indication
     Dates: start: 20251001
  16. Pen [Concomitant]
     Indication: Product used for unknown indication
     Dates: start: 20250927
  17. AMLODIPINE [Concomitant]
     Active Substance: AMLODIPINE BESYLATE
     Indication: Product used for unknown indication
     Dates: start: 20250925, end: 20251010
  18. PANTOPRAZOLE [Concomitant]
     Active Substance: PANTOPRAZOLE
     Indication: Product used for unknown indication
     Dates: start: 20250926
  19. ATOVAQUONE [Concomitant]
     Active Substance: ATOVAQUONE
     Indication: Product used for unknown indication
  20. RISEDRONATE SODIUM [Concomitant]
     Active Substance: RISEDRONATE SODIUM
     Indication: Product used for unknown indication
     Dates: start: 20250926
  21. ALFUZOSIN HYDROCHLORIDE [Concomitant]
     Active Substance: ALFUZOSIN HYDROCHLORIDE
     Indication: Product used for unknown indication
     Dates: start: 20250927

REACTIONS (2)
  - Blood creatinine increased [Not Recovered/Not Resolved]
  - Oedema peripheral [Not Recovered/Not Resolved]

NARRATIVE: CASE EVENT DATE: 20250929
